FAERS Safety Report 9419494 (Version 2)
Quarter: 2013Q3

REPORT INFORMATION
  Report Type: Spontaneous
  Country: AU (occurrence: AU)
  Receive Date: 20130725
  Receipt Date: 20130806
  Transmission Date: 20140515
  Serious: Yes (Hospitalization)
  Sender: FDA-Public Use
  Company Number: AU-NOVOPROD-383372

PATIENT
  Sex: Female

DRUGS (4)
  1. NOVORAPID FLEXPEN [Suspect]
     Indication: PRODUCT USED FOR UNKNOWN INDICATION
     Dosage: UNK
     Route: 065
  2. NOVORAPID FLEXPEN [Suspect]
     Dosage: UNK
     Route: 065
  3. NOVORAPID FLEXPEN [Suspect]
     Dosage: UNK
     Route: 065
  4. NOVORAPID FLEXPEN [Suspect]
     Dosage: UNK
     Route: 065

REACTIONS (4)
  - Ketoacidosis [Recovered/Resolved]
  - Ketoacidosis [Recovered/Resolved]
  - Ketoacidosis [Recovered/Resolved]
  - Ketoacidosis [Recovered/Resolved]
